FAERS Safety Report 18306806 (Version 1)
Quarter: 2020Q3

REPORT INFORMATION
  Report Type: Spontaneous
  Country: US (occurrence: US)
  Receive Date: 20200924
  Receipt Date: 20200924
  Transmission Date: 20201103
  Serious: Yes (Life-Threatening, Disabling, Other)
  Sender: FDA-Public Use
  Company Number: None

PATIENT
  Age: 41 Year
  Sex: Female
  Weight: 67.05 kg

DRUGS (9)
  1. OXYCODONE [Suspect]
     Active Substance: OXYCODONE
     Indication: PALLIATIVE CARE
     Dates: start: 20151208
  2. DILAUDID [Suspect]
     Active Substance: HYDROMORPHONE HYDROCHLORIDE
  3. FENTANYL. [Suspect]
     Active Substance: FENTANYL
  4. NEXIUM [Concomitant]
     Active Substance: ESOMEPRAZOLE MAGNESIUM
  5. GABAPENTIN. [Suspect]
     Active Substance: GABAPENTIN
  6. INDERAL [Concomitant]
     Active Substance: PROPRANOLOL HYDROCHLORIDE
  7. VALIUM [Suspect]
     Active Substance: DIAZEPAM
  8. DIAZEPAM. [Concomitant]
     Active Substance: DIAZEPAM
  9. CALCIUM W VIT D [Concomitant]

REACTIONS (11)
  - Cardiac disorder [None]
  - Haematemesis [None]
  - Internal haemorrhage [None]
  - Gastrooesophageal reflux disease [None]
  - Ear discomfort [None]
  - Eustachian tube disorder [None]
  - Oesophagitis [None]
  - Tachycardia [None]
  - Insurance issue [None]
  - Hypothermia [None]
  - Haemorrhage [None]

NARRATIVE: CASE EVENT DATE: 20200401
